FAERS Safety Report 15305341 (Version 1)
Quarter: 2018Q3

REPORT INFORMATION
  Report Type: Spontaneous
  Country: US (occurrence: US)
  Receive Date: 20180810
  Receipt Date: 20180810
  Transmission Date: 20181010
  Serious: Yes (Death)
  Sender: FDA-Public Use
  Company Number: None

PATIENT
  Age: 62 Year
  Sex: Male

DRUGS (7)
  1. HYDROMORPHONE 4MG [Concomitant]
  2. ALPRAZOLAM 1MG [Concomitant]
     Active Substance: ALPRAZOLAM
  3. LINZESS [Concomitant]
     Active Substance: LINACLOTIDE
  4. NEXIUM [Concomitant]
     Active Substance: ESOMEPRAZOLE MAGNESIUM
  5. HYDROCODONE/APAP 10/325MG [Concomitant]
  6. LEXAPRO [Concomitant]
     Active Substance: ESCITALOPRAM OXALATE
  7. IMATINIB [Suspect]
     Active Substance: IMATINIB
     Indication: CHRONIC MYELOID LEUKAEMIA
     Route: 048
     Dates: start: 20180104

REACTIONS (1)
  - Death [None]

NARRATIVE: CASE EVENT DATE: 20180808
